FAERS Safety Report 22184800 (Version 1)
Quarter: 2023Q2

REPORT INFORMATION
  Report Type: Spontaneous
  Country: US (occurrence: US)
  Receive Date: 20230407
  Receipt Date: 20230407
  Transmission Date: 20230722
  Serious: No
  Sender: FDA-Public Use
  Company Number: US-drreddys-SPO/USA/23/0160300

PATIENT
  Age: 42 Year
  Sex: Male

DRUGS (4)
  1. AMLODIPINE MALEATE [Suspect]
     Active Substance: AMLODIPINE MALEATE
     Indication: Blood pressure abnormal
  2. TARPEYO [Suspect]
     Active Substance: BUDESONIDE
     Indication: IgA nephropathy
     Route: 048
     Dates: start: 20220208
  3. TARPEYO [Suspect]
     Active Substance: BUDESONIDE
     Indication: Haematuria
  4. TARPEYO [Suspect]
     Active Substance: BUDESONIDE
     Indication: Mesangioproliferative glomerulonephritis

REACTIONS (1)
  - Joint swelling [Recovered/Resolved]
